FAERS Safety Report 8901770 (Version 2)
Quarter: 2013Q1

REPORT INFORMATION
  Report Type: Spontaneous
  Country: US (occurrence: None)
  Receive Date: 20121105
  Receipt Date: 20121207
  Transmission Date: 20140127
  Serious: Yes (Other)
  Sender: FDA-Public Use
  Company Number: 2012SA077526

PATIENT
  Sex: Female
  Weight: 95.25 kg

DRUGS (7)
  1. ICY HOT [Suspect]
     Indication: MUSCULOSKELETAL STIFFNESS
     Dosage: 2.5 OUNCE
     Route: 061
     Dates: start: 20121017, end: 20121018
  2. ICY HOT [Suspect]
     Indication: PAIN
     Dosage: 2.5 OUNCE
     Route: 061
     Dates: start: 20121017, end: 20121018
  3. ZYRTEC [Concomitant]
  4. SINGULAIR [Concomitant]
  5. NEXIUM /UNK/ [Concomitant]
  6. PRENATAL VITAMINS [Concomitant]
  7. FLEXERIL [Concomitant]

REACTIONS (4)
  - Application site pain [None]
  - Application site erythema [None]
  - Application site swelling [None]
  - Application site vesicles [None]
